FAERS Safety Report 21411093 (Version 1)
Quarter: 2022Q4

REPORT INFORMATION
  Report Type: Spontaneous
  Country: TH (occurrence: TH)
  Receive Date: 20221005
  Receipt Date: 20221005
  Transmission Date: 20230112
  Serious: Yes (Other)
  Sender: FDA-Public Use
  Company Number: TH-ORPHANEU-2022004167

PATIENT

DRUGS (3)
  1. DACTINOMYCIN [Suspect]
     Active Substance: DACTINOMYCIN
     Indication: Embryonal rhabdomyosarcoma
     Dosage: UNK, 14 CYCLES AT 21 DAYS INTERVALS
     Route: 042
  2. VINCRISTINE [Suspect]
     Active Substance: VINCRISTINE
     Indication: Embryonal rhabdomyosarcoma
     Dosage: 14 CYCLES AT 21 DAYS INTERVALS
     Route: 042
  3. CYCLOPHOSPHAMIDE [Suspect]
     Active Substance: CYCLOPHOSPHAMIDE
     Indication: Embryonal rhabdomyosarcoma
     Dosage: 14 CYCLES AT 21 DAYS INTERVALS
     Route: 042

REACTIONS (7)
  - Hydronephrosis [Recovering/Resolving]
  - Tumour necrosis [Unknown]
  - Tumour haemorrhage [Recovering/Resolving]
  - Thrombocytopenia [Unknown]
  - Pyrexia [Unknown]
  - Abdominal distension [Unknown]
  - Constipation [Unknown]
